FAERS Safety Report 5527193-7 (Version None)
Quarter: 2007Q4

REPORT INFORMATION
  Report Type: 
  Country: None (occurrence: None)
  Receive Date: 20071121
  Receipt Date: 20071112
  Transmission Date: 20080405
  Serious: Yes (Other)
  Sender: FDA-Public Use
  Company Number: 2007SP022957

PATIENT
  Age: 49 Year
  Sex: Female

DRUGS (2)
  1. PEG-INTRON [Suspect]
     Indication: HEPATITIS C
     Dosage: SC
     Route: 058
     Dates: start: 20070921, end: 20070927
  2. RIBASPHERE [Suspect]
     Indication: HEPATITIS C
     Dosage: PO
     Route: 048
     Dates: start: 20070921, end: 20070927

REACTIONS (7)
  - BLOOD POTASSIUM INCREASED [None]
  - FLUID RETENTION [None]
  - INGUINAL HERNIA [None]
  - NAUSEA [None]
  - POSTOPERATIVE HERNIA [None]
  - RENAL IMPAIRMENT [None]
  - TREMOR [None]
